FAERS Safety Report 10580971 (Version 1)
Quarter: 2014Q4

REPORT INFORMATION
  Report Type: Spontaneous
  Country: US (occurrence: None)
  Receive Date: 20141112
  Receipt Date: 20141112
  Transmission Date: 20150529
  Serious: Yes (Other)
  Sender: FDA-Public Use
  Company Number: None

PATIENT
  Age: 64 Year
  Sex: Female
  Weight: 83.01 kg

DRUGS (1)
  1. AMLODIPINE [Suspect]
     Active Substance: AMLODIPINE BESYLATE
     Indication: BLOOD PRESSURE MANAGEMENT
     Dosage: 1 PILL
     Route: 048
     Dates: start: 20140801, end: 20140908

REACTIONS (8)
  - Eye swelling [None]
  - Hypersensitivity [None]
  - Rash pruritic [None]
  - Gastrooesophageal reflux disease [None]
  - Pruritus [None]
  - Cough [None]
  - Product substitution issue [None]
  - Lip swelling [None]

NARRATIVE: CASE EVENT DATE: 20140801
